FAERS Safety Report 8915035 (Version 1)
Quarter: 2012Q4

REPORT INFORMATION
  Report Type: 
  Country: US (occurrence: US)
  Receive Date: 20121119
  Receipt Date: 20121119
  Transmission Date: 20130627
  Serious: No
  Sender: FDA-Public Use
  Company Number: US-TEVA-368877USA

PATIENT
  Sex: Male
  Weight: 68.1 kg

DRUGS (4)
  1. FENTORA [Suspect]
     Dosage: QID
     Route: 002
  2. FENTANYL [Concomitant]
     Dosage: q 72 hours
     Route: 061
  3. LANTUS [Concomitant]
     Dates: start: 2010
  4. HUMALOG [Concomitant]
     Dates: start: 2010

REACTIONS (2)
  - Malaise [Not Recovered/Not Resolved]
  - Pain [Not Recovered/Not Resolved]
